FAERS Safety Report 5569247-5 (Version None)
Quarter: 2007Q4

REPORT INFORMATION
  Report Type: 
  Country: None (occurrence: None)
  Receive Date: 20071220
  Receipt Date: 20070924
  Transmission Date: 20080405
  Serious: No
  Sender: FDA-Public Use
  Company Number: A0683813A

PATIENT
  Age: 78 Year
  Sex: Male

DRUGS (8)
  1. AVODART [Suspect]
     Indication: BENIGN PROSTATIC HYPERPLASIA
     Dosage: .5MG PER DAY
     Route: 048
     Dates: start: 20070801, end: 20070801
  2. ZOCOR [Concomitant]
  3. COUMADIN [Concomitant]
  4. FLECAINIDE ACETATE [Concomitant]
  5. LISINOPRIL [Concomitant]
  6. SYNTHROID [Concomitant]
  7. NEXIUM [Concomitant]
  8. ZOLOFT [Concomitant]

REACTIONS (1)
  - HYPOTENSION [None]
